FAERS Safety Report 7647607-6 (Version None)
Quarter: 2011Q3

REPORT INFORMATION
  Report Type: 
  Country: None (occurrence: None)
  Receive Date: 20110801
  Receipt Date: 20110720
  Transmission Date: 20111222
  Serious: Yes (Hospitalization, Other)
  Sender: FDA-Public Use
  Company Number: US-CELGENEUS-163-21880-11052479

PATIENT
  Sex: Female
  Weight: 46.762 kg

DRUGS (14)
  1. MARINOL [Concomitant]
     Route: 065
  2. NORTRIPTYLINE HCL [Concomitant]
     Route: 065
  3. REVLIMID [Suspect]
     Dosage: 5 MILLIGRAM
     Route: 048
     Dates: start: 20101028, end: 20101201
  4. BISOPROLOL FUMARATE [Concomitant]
     Route: 065
  5. FLONASE [Concomitant]
     Route: 065
  6. AMLODIPINE [Concomitant]
     Route: 065
  7. BUDESONIDE [Concomitant]
     Route: 065
  8. LITHIUM [Concomitant]
     Route: 065
  9. BENZONATATE [Concomitant]
     Route: 065
  10. LOVAZA [Concomitant]
     Route: 065
  11. MEGACE [Concomitant]
     Route: 065
  12. XANAX [Concomitant]
     Route: 065
  13. DONEPEZIL HCL [Concomitant]
     Route: 065
  14. SINGULAIR [Concomitant]
     Route: 065

REACTIONS (6)
  - ANTIBIOTIC RESISTANT STAPHYLOCOCCUS TEST [None]
  - MUSCLE SPASMS [None]
  - BASAL CELL CARCINOMA [None]
  - CHRONIC OBSTRUCTIVE PULMONARY DISEASE [None]
  - INCONTINENCE [None]
  - DISEASE PROGRESSION [None]
